FAERS Safety Report 16898749 (Version 2)
Quarter: 2019Q4

REPORT INFORMATION
  Report Type: Report from Study
  Country: US (occurrence: US)
  Receive Date: 20191009
  Receipt Date: 20191112
  Transmission Date: 20200122
  Serious: Yes (Hospitalization, Other)
  Sender: FDA-Public Use
  Company Number: US-BAYER-2019-133285

PATIENT
  Age: 77 Year
  Sex: Male

DRUGS (3)
  1. VITRAKVI [Suspect]
     Active Substance: LAROTRECTINIB
     Indication: METASTASES TO BONE
  2. TYLENOL [Concomitant]
     Active Substance: ACETAMINOPHEN
     Indication: PAIN
     Dosage: UNK
  3. VITRAKVI [Suspect]
     Active Substance: LAROTRECTINIB
     Indication: BLADDER CANCER
     Dosage: 100 MG, BID
     Route: 048
     Dates: start: 20190703

REACTIONS (10)
  - Anaemia [Not Recovered/Not Resolved]
  - International normalised ratio increased [Not Recovered/Not Resolved]
  - Fatigue [Not Recovered/Not Resolved]
  - Confusional state [Not Recovered/Not Resolved]
  - Hyperkalaemia [Not Recovered/Not Resolved]
  - Dizziness postural [Not Recovered/Not Resolved]
  - Musculoskeletal pain [Recovering/Resolving]
  - Fall [Not Recovered/Not Resolved]
  - Traumatic fracture [Not Recovered/Not Resolved]
  - Asthenia [Not Recovered/Not Resolved]

NARRATIVE: CASE EVENT DATE: 20191001
